FAERS Safety Report 6106243-3 (Version None)
Quarter: 2009Q1

REPORT INFORMATION
  Report Type: 
  Country: None (occurrence: None)
  Receive Date: 20090306
  Receipt Date: 20090224
  Transmission Date: 20090719
  Serious: Yes (Other)
  Sender: FDA-Public Use
  Company Number: NO-TEVA-186596ISR

PATIENT
  Age: 33 Year
  Sex: Male

DRUGS (12)
  1. ETOPOSIDE [Suspect]
     Indication: EWING'S SARCOMA
     Dates: start: 20081215, end: 20081216
  2. DOXORUBICIN HCL [Suspect]
     Indication: EWING'S SARCOMA
     Dates: start: 20081215, end: 20081217
  3. VINCRISTINE [Suspect]
     Indication: EWING'S SARCOMA
  4. MESNA [Suspect]
     Indication: EWING'S SARCOMA
     Dates: start: 20081215, end: 20081216
  5. BLEOMYCIN [Suspect]
     Indication: EWING'S SARCOMA
  6. IFOSFAMIDE [Suspect]
     Indication: EWING'S SARCOMA
     Dates: start: 20081126, end: 20081217
  7. CISPLATIN [Suspect]
     Indication: EWING'S SARCOMA
  8. ACETAMINOPHEN [Concomitant]
     Dates: start: 20081218, end: 20081218
  9. ZOPICLONE [Concomitant]
     Dates: start: 20081218, end: 20081218
  10. ONDANSETRON [Concomitant]
     Dates: start: 20081218, end: 20081218
  11. LACTULOSE [Concomitant]
     Dates: start: 20081218, end: 20081218
  12. HEPARIN-FRACTION, SODIUM SALT [Concomitant]
     Dates: start: 20081218, end: 20081218

REACTIONS (2)
  - COMMUNICATION DISORDER [None]
  - CONFUSIONAL STATE [None]
